FAERS Safety Report 9264879 (Version 2)
Quarter: 2013Q2

REPORT INFORMATION
  Report Type: Report from Study
  Country: CL (occurrence: CL)
  Receive Date: 20130501
  Receipt Date: 20130508
  Transmission Date: 20140414
  Serious: Yes (Hospitalization, Other)
  Sender: FDA-Public Use
  Company Number: PHHY2013CL042721

PATIENT
  Age: 88 Year
  Sex: Female

DRUGS (2)
  1. ACLASTA [Suspect]
     Indication: OSTEOPOROSIS
     Dosage: UNK UKN, UNK
     Route: 042
  2. NEXIUM//ESOMEPRAZOLE SODIUM [Concomitant]

REACTIONS (5)
  - Haematemesis [Unknown]
  - Vomiting [Unknown]
  - Asthenia [Recovering/Resolving]
  - Malnutrition [Unknown]
  - Weight decreased [Unknown]
